FAERS Safety Report 20093859 (Version 1)
Quarter: 2021Q4

REPORT INFORMATION
  Report Type: Report from Study
  Country: US (occurrence: US)
  Receive Date: 20211121
  Receipt Date: 20211121
  Transmission Date: 20220303
  Serious: Yes (Hospitalization)
  Sender: FDA-Public Use
  Company Number: US-ABBVIE-21K-163-4168251-00

PATIENT
  Sex: Male

DRUGS (5)
  1. VENCLEXTA [Suspect]
     Active Substance: VENETOCLAX
     Indication: Chronic lymphocytic leukaemia
     Route: 048
     Dates: start: 20210701, end: 2021
  2. VENCLEXTA [Suspect]
     Active Substance: VENETOCLAX
     Dosage: FOUR 100MG TABLETS DAILY
     Route: 048
     Dates: start: 2021, end: 2021
  3. VENCLEXTA [Suspect]
     Active Substance: VENETOCLAX
     Dosage: FOUR 100MG TABLETS DAILY
     Route: 048
     Dates: start: 2021
  4. TYLENOL [Concomitant]
     Active Substance: ACETAMINOPHEN
     Indication: Product used for unknown indication
  5. VALACYCLOVIR [Concomitant]
     Active Substance: VALACYCLOVIR HYDROCHLORIDE
     Indication: Product used for unknown indication

REACTIONS (1)
  - Limb injury [Unknown]

NARRATIVE: CASE EVENT DATE: 20210101
